FAERS Safety Report 13650680 (Version 4)
Quarter: 2017Q3

REPORT INFORMATION
  Report Type: Report from Study
  Country: US (occurrence: US)
  Receive Date: 20170614
  Receipt Date: 20170719
  Transmission Date: 20171127
  Serious: Yes (Hospitalization, Other)
  Sender: FDA-Public Use
  Company Number: US-GILEAD-2017-0277407

PATIENT
  Age: 85 Year
  Sex: Female

DRUGS (4)
  1. AMBRISENTAN [Suspect]
     Active Substance: AMBRISENTAN
     Dosage: 5 MG, QD
     Route: 048
  2. ADCIRCA [Concomitant]
     Active Substance: TADALAFIL
  3. AMBRISENTAN [Suspect]
     Active Substance: AMBRISENTAN
     Indication: PULMONARY ARTERIAL HYPERTENSION
     Dosage: 10 MG, QD
     Route: 065
     Dates: start: 20140717
  4. ELIQUIS [Concomitant]
     Active Substance: APIXABAN

REACTIONS (4)
  - Fall [Unknown]
  - Gait disturbance [Not Recovered/Not Resolved]
  - Parkinson^s disease [Unknown]
  - Renal failure [Not Recovered/Not Resolved]
